FAERS Safety Report 6156148-7 (Version None)
Quarter: 2009Q2

REPORT INFORMATION
  Report Type: 
  Country: None (occurrence: None)
  Receive Date: 20090413
  Receipt Date: 20090413
  Transmission Date: 20091009
  Serious: Yes (Other)
  Sender: FDA-Public Use
  Company Number: None

PATIENT
  Sex: Female
  Weight: 83.9154 kg

DRUGS (1)
  1. ADVAIR DISKUS 250/50 [Suspect]
     Indication: DYSPNOEA
     Dosage: 1 INHALATION 2 TIMES A DAY PO
     Route: 048
     Dates: start: 20090313, end: 20090313

REACTIONS (5)
  - CHEST PAIN [None]
  - COUGH [None]
  - DYSPNOEA [None]
  - NAUSEA [None]
  - WHEEZING [None]
